FAERS Safety Report 19964869 (Version 2)
Quarter: 2021Q4

REPORT INFORMATION
  Report Type: Report from Study
  Country: TR (occurrence: TR)
  Receive Date: 20211018
  Receipt Date: 20211021
  Transmission Date: 20220303
  Serious: Yes (Death)
  Sender: FDA-Public Use
  Company Number: TR-CELGENE-TUR-20211004296

PATIENT

DRUGS (2)
  1. LENALIDOMIDE [Suspect]
     Active Substance: LENALIDOMIDE
     Indication: Plasma cell myeloma
     Dosage: 25 MILLIGRAM
     Route: 048
     Dates: start: 20170407
  2. DEXAMETHASONE [Suspect]
     Active Substance: DEXAMETHASONE
     Indication: Plasma cell myeloma
     Route: 048
     Dates: start: 2017

REACTIONS (8)
  - Death [Fatal]
  - Leukopenia [Unknown]
  - Leukopenia [Unknown]
  - Anaemia [Unknown]
  - Anaemia [Unknown]
  - Thrombocytopenia [Unknown]
  - Thrombocytopenia [Unknown]
  - Tremor [Unknown]

NARRATIVE: CASE EVENT DATE: 20170101
